FAERS Safety Report 13699266 (Version 1)
Quarter: 2017Q2

REPORT INFORMATION
  Report Type: Spontaneous
  Country: US (occurrence: US)
  Receive Date: 20170628
  Receipt Date: 20170628
  Transmission Date: 20170830
  Serious: Yes (Hospitalization)
  Sender: FDA-Public Use
  Company Number: US-ELI_LILLY_AND_COMPANY-US201706010502

PATIENT
  Age: 79 Year
  Sex: Male

DRUGS (7)
  1. HUMULIN 70/30 [Suspect]
     Active Substance: INSULIN HUMAN
     Dosage: 58 U, EACH NIGHT
     Dates: start: 201704
  2. LASIX [Suspect]
     Active Substance: FUROSEMIDE
     Dosage: 20 MG, OTHER
     Route: 065
  3. LANTUS [Concomitant]
     Active Substance: INSULIN GLARGINE
     Indication: BLOOD GLUCOSE INCREASED
     Dosage: 6 U, DAILY
     Route: 065
     Dates: start: 2016
  4. HUMULIN 70/30 [Suspect]
     Active Substance: INSULIN HUMAN
     Dosage: 55 U, EACH NIGHT
     Route: 065
  5. HUMULIN 70/30 [Suspect]
     Active Substance: INSULIN HUMAN
     Indication: TYPE 2 DIABETES MELLITUS
     Dosage: 46 U, EACH MORNING
     Route: 065
  6. LASIX [Suspect]
     Active Substance: FUROSEMIDE
     Indication: PRODUCT USED FOR UNKNOWN INDICATION
     Dosage: 40 MG, OTHER
     Route: 065
  7. HUMULIN 70/30 [Suspect]
     Active Substance: INSULIN HUMAN
     Dosage: 55 U, EACH MORNING
     Dates: start: 201704

REACTIONS (13)
  - Blood glucose increased [Recovering/Resolving]
  - Infection [Recovered/Resolved]
  - Blood glucose fluctuation [Recovering/Resolving]
  - Joint swelling [Not Recovered/Not Resolved]
  - Peripheral swelling [Not Recovered/Not Resolved]
  - Arrhythmia [Not Recovered/Not Resolved]
  - Fluid retention [Not Recovered/Not Resolved]
  - Blood glucose increased [Recovered/Resolved]
  - Weight increased [Not Recovered/Not Resolved]
  - Drug dispensing error [Unknown]
  - Arrhythmia [Not Recovered/Not Resolved]
  - Renal disorder [Recovering/Resolving]
  - Blood glucose increased [Recovering/Resolving]

NARRATIVE: CASE EVENT DATE: 2007
